FAERS Safety Report 8740475 (Version 3)
Quarter: 2013Q1

REPORT INFORMATION
  Report Type: Spontaneous
  Country: US (occurrence: US)
  Receive Date: 20120823
  Receipt Date: 20130110
  Transmission Date: 20140127
  Serious: No
  Sender: FDA-Public Use
  Company Number: US-009507513-1208USA006124

PATIENT
  Age: 6 Year
  Sex: Male

DRUGS (2)
  1. ASMANEX TWISTHALER [Suspect]
     Dosage: 110 MICROGRAM, QD
  2. ALBUTEROL [Concomitant]

REACTIONS (3)
  - Malaise [Recovering/Resolving]
  - Drug dose omission [Unknown]
  - Product quality issue [Unknown]
